FAERS Safety Report 15463486 (Version 2)
Quarter: 2018Q4

REPORT INFORMATION
  Report Type: Other
  Country: US (occurrence: US)
  Receive Date: 20181004
  Receipt Date: 20181109
  Transmission Date: 20190204
  Serious: Yes (Death, Other)
  Sender: FDA-Public Use
  Company Number: US-ACTELION-A-CH2018-179726

PATIENT
  Age: 59 Year
  Sex: Female

DRUGS (8)
  1. HYDROXYUREA. [Concomitant]
     Active Substance: HYDROXYUREA
  2. DALTEPARIN [Concomitant]
     Active Substance: DALTEPARIN
  3. TREPROSTINIL. [Concomitant]
     Active Substance: TREPROSTINIL
     Route: 055
  4. OXYRAPID [Concomitant]
  5. OXYGEN. [Concomitant]
     Active Substance: OXYGEN
  6. SILDENAFIL. [Concomitant]
     Active Substance: SILDENAFIL
  7. FOLATE [Concomitant]
     Active Substance: FOLATE SODIUM
  8. BOSENTAN. [Suspect]
     Active Substance: BOSENTAN
     Indication: PULMONARY HYPERTENSION
     Route: 048

REACTIONS (4)
  - Pulmonary hypertension [Unknown]
  - Death [Fatal]
  - Condition aggravated [Unknown]
  - Disease progression [Unknown]
